FAERS Safety Report 21118619 (Version 1)
Quarter: 2022Q3

REPORT INFORMATION
  Report Type: Spontaneous
  Country: AU (occurrence: AU)
  Receive Date: 20220722
  Receipt Date: 20220722
  Transmission Date: 20221026
  Serious: Yes (Death, Other)
  Sender: FDA-Public Use
  Company Number: AU-BAYER-2022A101525

PATIENT

DRUGS (1)
  1. EYLEA [Suspect]
     Active Substance: AFLIBERCEPT
     Indication: Iris neovascularisation
     Dosage: SOLUTION FOR INJECTION

REACTIONS (2)
  - Death [Fatal]
  - Product use in unapproved indication [Unknown]
